FAERS Safety Report 10392445 (Version 2)
Quarter: 2014Q3

REPORT INFORMATION
  Report Type: Spontaneous
  Country: BR (occurrence: BR)
  Receive Date: 20140819
  Receipt Date: 20140819
  Transmission Date: 20150326
  Serious: Yes (Other)
  Sender: FDA-Public Use
  Company Number: BR-BAYER-2013-058045

PATIENT
  Age: 43 Year
  Sex: Female
  Weight: 64 kg

DRUGS (4)
  1. MIRENA [Suspect]
     Active Substance: LEVONORGESTREL
     Indication: CONTRACEPTION
     Dosage: 20 MCG/24HR, CONT
     Route: 015
     Dates: start: 20130408, end: 20140701
  2. QLAIRA [Suspect]
     Active Substance: DIENOGEST\ESTRADIOL VALERATE
     Indication: MENSTRUAL CYCLE MANAGEMENT
     Dosage: 1 DF, QD
     Route: 048
     Dates: start: 20140808
  3. MIRENA [Suspect]
     Active Substance: LEVONORGESTREL
     Indication: MENSTRUAL CYCLE MANAGEMENT
  4. ARADOIS [Concomitant]
     Active Substance: LOSARTAN POTASSIUM
     Indication: HYPERTENSIVE CRISIS
     Dosage: 1 DF, OM
     Route: 048
     Dates: start: 201209

REACTIONS (8)
  - Off label use [None]
  - Breast pain [Recovered/Resolved]
  - Menorrhagia [Not Recovered/Not Resolved]
  - Swelling [Not Recovered/Not Resolved]
  - Vaginal haemorrhage [Recovered/Resolved]
  - Vein disorder [Not Recovered/Not Resolved]
  - Device use error [None]
  - Weight increased [Not Recovered/Not Resolved]

NARRATIVE: CASE EVENT DATE: 201304
